FAERS Safety Report 14626216 (Version 1)
Quarter: 2018Q1

REPORT INFORMATION
  Report Type: Spontaneous
  Country: US (occurrence: US)
  Receive Date: 20180312
  Receipt Date: 20180312
  Transmission Date: 20180509
  Serious: Yes (Other)
  Sender: FDA-Public Use
  Company Number: US-ASTELLAS-2018US011685

PATIENT
  Age: 36 Year
  Sex: Male

DRUGS (3)
  1. MYCOPHENOLATE MOFETIL. [Concomitant]
     Active Substance: MYCOPHENOLATE MOFETIL
     Indication: STEM CELL TRANSPLANT
     Dosage: UNK UNK, UNKNOWN FREQ.
     Route: 065
  2. TACROLIMUS. [Suspect]
     Active Substance: TACROLIMUS
     Indication: STEM CELL TRANSPLANT
     Dosage: UNK UNK, UNKNOWN FREQ.
     Route: 065
  3. PREDNISONE. [Concomitant]
     Active Substance: PREDNISONE
     Indication: STEM CELL TRANSPLANT
     Dosage: UNK UNK, UNKNOWN FREQ.
     Route: 065

REACTIONS (6)
  - Anorectal disorder [Recovered/Resolved]
  - Anal abscess [Recovered/Resolved]
  - Crohn^s disease [Unknown]
  - Off label use [Unknown]
  - Graft versus host disease in skin [Recovered/Resolved]
  - Graft versus host disease in gastrointestinal tract [Recovered/Resolved]

NARRATIVE: CASE EVENT DATE: 201403
